FAERS Safety Report 8479787-7 (Version None)
Quarter: 2012Q2

REPORT INFORMATION
  Report Type: 
  Country: None (occurrence: None)
  Receive Date: 20120629
  Receipt Date: 20120621
  Transmission Date: 20120825
  Serious: Yes (Hospitalization, Other)
  Sender: FDA-Public Use
  Company Number: BR-ABBOTT-12P-020-0947741-00

PATIENT
  Sex: Female

DRUGS (9)
  1. ALL OTHER THERAPEUTIC PRODUCTS [Suspect]
     Indication: PRODUCT USED FOR UNKNOWN INDICATION
  2. OMEPRAZOLE [Concomitant]
     Indication: PRODUCT USED FOR UNKNOWN INDICATION
  3. RAMIPRIL [Concomitant]
     Indication: PRODUCT USED FOR UNKNOWN INDICATION
     Dosage: IN THE MORNING
     Dates: start: 20120611
  4. FOLIC ACID [Concomitant]
     Indication: PRODUCT USED FOR UNKNOWN INDICATION
  5. NIMESULIDE [Concomitant]
     Indication: PRODUCT USED FOR UNKNOWN INDICATION
  6. HUMIRA [Suspect]
     Indication: RHEUMATOID ARTHRITIS
     Route: 058
     Dates: start: 20120606
  7. UNKNOWN DRUG [Concomitant]
     Indication: BLOOD PRESSURE
  8. METHOTREXATE [Concomitant]
     Indication: PRODUCT USED FOR UNKNOWN INDICATION
  9. PREDNISONE TAB [Concomitant]
     Indication: PRODUCT USED FOR UNKNOWN INDICATION

REACTIONS (6)
  - BLOOD PRESSURE INCREASED [None]
  - RESPIRATORY ARREST [None]
  - APHASIA [None]
  - CHEST PAIN [None]
  - CARDIOMEGALY [None]
  - ASTHENIA [None]
